FAERS Safety Report 17337598 (Version 1)
Quarter: 2020Q1

REPORT INFORMATION
  Report Type: Spontaneous
  Country: FR (occurrence: FR)
  Receive Date: 20200129
  Receipt Date: 20200129
  Transmission Date: 20200409
  Serious: Yes (Death, Hospitalization, Other)
  Sender: FDA-Public Use
  Company Number: FR-LEO PHARMA-327718

PATIENT
  Sex: Female

DRUGS (2)
  1. PROTOPIC [Suspect]
     Active Substance: TACROLIMUS
     Indication: INTERTRIGO
  2. BETAMETHASONE. [Suspect]
     Active Substance: BETAMETHASONE
     Indication: PRURITUS
     Dosage: CONSUMPTION WAS ESTIMATED AT 20 TUBES PER MONTH (I.E. 600 G PER MONTH OR 7.2 KG PER YEAR FOR THE PAS

REACTIONS (9)
  - Skin burning sensation [Unknown]
  - Septic shock [Fatal]
  - Cushing^s syndrome [Not Recovered/Not Resolved]
  - Skin atrophy [Not Recovered/Not Resolved]
  - Condition aggravated [Not Recovered/Not Resolved]
  - Wound necrosis [Not Recovered/Not Resolved]
  - Fibula fracture [Not Recovered/Not Resolved]
  - Osteoporosis [Not Recovered/Not Resolved]
  - Product use in unapproved indication [Unknown]
